FAERS Safety Report 7505430-7 (Version None)
Quarter: 2011Q2

REPORT INFORMATION
  Report Type: 
  Country: None (occurrence: None)
  Receive Date: 20110519
  Receipt Date: 20110511
  Transmission Date: 20111010
  Serious: Yes (Hospitalization)
  Sender: FDA-Public Use
  Company Number: 2011100540

PATIENT
  Age: 56 Year
  Sex: Male
  Weight: 105 kg

DRUGS (17)
  1. CYMBALTA [Suspect]
     Indication: DEPRESSION
     Dosage: 60 MG, ORAL
     Route: 048
     Dates: start: 20020101
  2. ALLOPURINOL [Concomitant]
  3. METFORMIN HCL [Concomitant]
  4. FRAGMIN [Suspect]
     Indication: EMBOLISM
     Dosage: 5000 IU, SUBCUTANEOUS
     Route: 058
     Dates: start: 20100610, end: 20100625
  5. MIRTAZAPINE [Concomitant]
  6. FLUVASTATIN [Concomitant]
  7. RAMIPRIL [Concomitant]
  8. VOLTAREN [Concomitant]
  9. FLUVASTATIN [Concomitant]
  10. FALITHROM (PHENPROCOUMON) [Concomitant]
  11. BISOPROLOL FUMARATE [Concomitant]
  12. SIMVASTATIN [Concomitant]
  13. FOLIC ACID [Concomitant]
  14. METHOTREXATE [Suspect]
     Indication: RHEUMATOID ARTHRITIS
     Dosage: 7.5 MG,ORAL
     Route: 048
     Dates: start: 19950101
  15. EMBOLEX [Suspect]
     Indication: THROMBOSIS PROPHYLAXIS
     Dosage: 8000 IU, SUBCUTANEOUS
     Route: 058
     Dates: start: 20100602, end: 20100609
  16. CELEBREX [Concomitant]
  17. DIPIDOLOR (PIRITRAMIDE) [Concomitant]

REACTIONS (3)
  - WOUND INFECTION STAPHYLOCOCCAL [None]
  - HAEMATOMA [None]
  - IMPAIRED HEALING [None]
